FAERS Safety Report 6069775-2 (Version None)
Quarter: 2009Q1

REPORT INFORMATION
  Report Type: 
  Country: None (occurrence: None)
  Receive Date: 20090204
  Receipt Date: 20090204
  Transmission Date: 20090719
  Serious: Yes (Other)
  Sender: FDA-Public Use
  Company Number: None

PATIENT
  Age: 65 Year
  Sex: Male
  Weight: 71.6683 kg

DRUGS (6)
  1. ACTOPLUS MET [Suspect]
     Indication: TYPE 2 DIABETES MELLITUS
     Dosage: 1 TABLET 2 TIMES PER DAY PO
     Route: 048
     Dates: start: 20080801, end: 20081101
  2. TRICOR [Concomitant]
  3. SIMVASTATIN [Concomitant]
  4. ALLER-TEC [Concomitant]
  5. ASTELIN [Concomitant]
  6. SUPHREDINE PE [Concomitant]

REACTIONS (1)
  - STRABISMUS [None]
